FAERS Safety Report 20415589 (Version 1)
Quarter: 2022Q1

REPORT INFORMATION
  Report Type: Spontaneous
  Country: AT (occurrence: AT)
  Receive Date: 20220202
  Receipt Date: 20220202
  Transmission Date: 20220423
  Serious: Yes (Hospitalization)
  Sender: FDA-Public Use
  Company Number: AT-NOVARTISPH-NVSC2022AT017896

PATIENT
  Age: 11 Year
  Sex: Female

DRUGS (18)
  1. METHOTREXATE SODIUM [Suspect]
     Active Substance: METHOTREXATE SODIUM
     Indication: Acute lymphocytic leukaemia
     Dosage: 30 MG
     Route: 037
     Dates: start: 20211207
  2. METHOTREXATE SODIUM [Suspect]
     Active Substance: METHOTREXATE SODIUM
     Dosage: 15 MG
     Route: 037
     Dates: start: 20211207, end: 20211214
  3. DEXAMETHASONE [Suspect]
     Active Substance: DEXAMETHASONE
     Indication: Acute lymphocytic leukaemia
     Dosage: 4 MG (4 MG)
     Route: 048
     Dates: start: 20211207
  4. VINCRISTINE SULFATE [Suspect]
     Active Substance: VINCRISTINE SULFATE
     Indication: Acute lymphocytic leukaemia
     Dosage: 1.8 MG (1.8 MG)
     Route: 042
     Dates: start: 20211209, end: 20211223
  5. SULFAMETHOXAZOLE\TRIMETHOPRIM [Concomitant]
     Active Substance: SULFAMETHOXAZOLE\TRIMETHOPRIM
     Indication: Infection
     Dosage: 80 MG (80 MG 3X/W)
     Route: 048
     Dates: start: 20180717, end: 20211227
  6. CECLOR [Concomitant]
     Active Substance: CEFACLOR
     Indication: Leukocyturia
     Dosage: 1500 G, QD(1500 G, DAILY)
     Route: 048
     Dates: start: 20211212
  7. INOTUZUMAB OZOGAMICIN [Concomitant]
     Active Substance: INOTUZUMAB OZOGAMICIN
     Indication: Acute lymphocytic leukaemia
     Dosage: 0.59 MG (0.59 MG)
     Route: 042
     Dates: start: 20211207
  8. LEVOMEPROMAZINE [Concomitant]
     Active Substance: LEVOMEPROMAZINE
     Indication: Prophylaxis
     Dosage: 6.25 MG, QD (6.25, DAILY)
     Route: 048
     Dates: start: 20211222, end: 20211227
  9. HUMAN RED BLOOD CELL [Concomitant]
     Active Substance: HUMAN RED BLOOD CELL
     Indication: Anaemia
     Dosage: UNK (3X)
     Route: 042
     Dates: start: 20211218, end: 20211223
  10. VIROPEL [Concomitant]
     Indication: Prophylaxis
     Dosage: 1 G, QD(1 G, DAILY)
     Route: 048
     Dates: start: 20181017, end: 20211227
  11. ENALAPRIL [Concomitant]
     Active Substance: ENALAPRIL
     Indication: Hypertension
     Dosage: 5 MG, QD (5 MG, DAILY)
     Route: 048
     Dates: start: 20211220, end: 20211222
  12. ENALAPRIL [Concomitant]
     Active Substance: ENALAPRIL
     Dosage: 15 MG, QD (15 MG, DAILY)
     Route: 048
     Dates: start: 20211223, end: 20211227
  13. NOXAFIL [Concomitant]
     Active Substance: POSACONAZOLE
     Indication: Infection
     Dosage: 300 MG, QD (300 MG, DAILY)
     Route: 048
     Dates: start: 20211226, end: 20211226
  14. NOXAFIL [Concomitant]
     Active Substance: POSACONAZOLE
     Dosage: 200 MG, QD (200 MG, DAILY)
     Route: 048
     Dates: start: 20211229, end: 20220114
  15. NOXAFIL [Concomitant]
     Active Substance: POSACONAZOLE
     Dosage: 250 MG, QD(250 MG, DAILY)
     Route: 048
     Dates: start: 20211218, end: 20211222
  16. PLATELETS [Concomitant]
     Active Substance: HUMAN PLATELET, ALLOGENIC
     Indication: Platelet count decreased
     Dosage: UNK (5X)
     Route: 042
     Dates: start: 20211214, end: 20211226
  17. METHYLPREDNISOLONE [Concomitant]
     Active Substance: METHYLPREDNISOLONE
     Indication: Acute lymphocytic leukaemia
     Dosage: 35 MG(35 MG)
     Route: 042
     Dates: start: 20211214, end: 20211214
  18. DEXAMETHASONE [Concomitant]
     Active Substance: DEXAMETHASONE
     Indication: Acute lymphocytic leukaemia
     Dosage: 4 MG (4 MG)
     Route: 042
     Dates: start: 20211207, end: 20211207

REACTIONS (1)
  - Posterior reversible encephalopathy syndrome [Recovered/Resolved]

NARRATIVE: CASE EVENT DATE: 20211225
